FAERS Safety Report 4982816-6 (Version None)
Quarter: 2006Q2

REPORT INFORMATION
  Report Type: 
  Country: None (occurrence: None)
  Receive Date: 20060420
  Receipt Date: 20060410
  Transmission Date: 20061013
  Serious: Yes (Hospitalization, Other)
  Sender: FDA-Public Use
  Company Number: 200602973

PATIENT
  Age: 32 Year
  Sex: Male

DRUGS (1)
  1. BOTOX [Suspect]
     Indication: MUSCLE SPASTICITY

REACTIONS (6)
  - ASTHENIA [None]
  - CLONUS [None]
  - MUSCLE SPASTICITY [None]
  - MYELITIS TRANSVERSE [None]
  - POST PROCEDURAL COMPLICATION [None]
  - SPINAL CORD NEOPLASM [None]
